FAERS Safety Report 4876242-8 (Version None)
Quarter: 2006Q1

REPORT INFORMATION
  Report Type: 
  Country: None (occurrence: None)
  Receive Date: 20060110
  Receipt Date: 20051118
  Transmission Date: 20060701
  Serious: Yes (Other)
  Sender: FDA-Public Use
  Company Number: PHRM2005FR03052

PATIENT
  Age: 78 Year
  Sex: Female

DRUGS (6)
  1. LESCOL [Suspect]
     Indication: DYSLIPIDAEMIA
     Dosage: 80 MG, QD
     Route: 048
     Dates: start: 20050218, end: 20051115
  2. ISOPTIN [Concomitant]
     Dosage: 240 MG, QD
     Route: 048
  3. KARDEGIC [Concomitant]
     Dosage: 75 MG, QD
     Route: 048
  4. PARIET [Concomitant]
     Dosage: 20 MG, QD
     Route: 048
  5. SERETIDE [Concomitant]
     Dosage: 1 DF, BID
  6. ATACAND [Concomitant]
     Dosage: 8 MG, QD
     Route: 048

REACTIONS (1)
  - FACE OEDEMA [None]
